FAERS Safety Report 9910219 (Version 1)
Quarter: 2014Q1

REPORT INFORMATION
  Report Type: Spontaneous
  Country: US (occurrence: US)
  Receive Date: 20140219
  Receipt Date: 20140219
  Transmission Date: 20141002
  Serious: Yes (Hospitalization)
  Sender: FDA-Public Use
  Company Number: US-JNJFOC-20140208546

PATIENT
  Age: 85 Year
  Sex: Female

DRUGS (8)
  1. ULTRAM [Suspect]
     Indication: PAIN
     Route: 065
  2. RISPERDAL [Suspect]
     Indication: TOURETTE^S DISORDER
     Route: 065
  3. RISPERDAL [Suspect]
     Indication: BIPOLAR DISORDER
     Route: 065
  4. DIABETA [Suspect]
     Indication: TYPE 2 DIABETES MELLITUS
     Route: 065
  5. SINEMET [Suspect]
     Indication: PARKINSON^S DISEASE
     Dosage: SINEMET IN COMBINATION WITH LEVODOPA
     Route: 065
  6. REQUIP [Suspect]
     Indication: PARKINSON^S DISEASE
     Route: 065
  7. PRILOSEC [Suspect]
     Indication: GASTROOESOPHAGEAL REFLUX DISEASE
     Route: 065
  8. LITHOBID [Suspect]
     Indication: BIPOLAR DISORDER
     Route: 065

REACTIONS (1)
  - Oesophageal spasm [Recovered/Resolved]
